FAERS Safety Report 9462298 (Version 2)
Quarter: 2013Q4

REPORT INFORMATION
  Report Type: Spontaneous
  Country: US (occurrence: US)
  Receive Date: 20130816
  Receipt Date: 20131024
  Transmission Date: 20140711
  Serious: No
  Sender: FDA-Public Use
  Company Number: US-BAYER-2013-098909

PATIENT
  Age: 32 Year
  Sex: Female
  Weight: 64 kg

DRUGS (1)
  1. MIRENA [Suspect]
     Indication: CONTRACEPTION
     Dosage: 20 MCG/24HR, CONT
     Route: 015
     Dates: start: 20130709, end: 20130812

REACTIONS (6)
  - Abdominal pain [None]
  - Device expulsion [None]
  - Abdominal pain lower [None]
  - Suprapubic pain [None]
  - Medical device discomfort [None]
  - Complication of device insertion [None]
